FAERS Safety Report 9845727 (Version 1)
Quarter: 2013Q4

REPORT INFORMATION
  Report Type: Spontaneous
  Country: US (occurrence: None)
  Receive Date: 20131223
  Receipt Date: 20131223
  Transmission Date: 20140711
  Serious: Yes (Other)
  Sender: FDA-Public Use
  Company Number: 2013US-74838

PATIENT
  Age: 21 Year
  Sex: Female

DRUGS (1)
  1. ABSORICA [Suspect]
     Indication: ACNE
     Dates: start: 20130220, end: 20130929

REACTIONS (1)
  - Depression [None]
